FAERS Safety Report 14200966 (Version 2)
Quarter: 2018Q2

REPORT INFORMATION
  Report Type: Spontaneous
  Country: US (occurrence: US)
  Receive Date: 20171117
  Receipt Date: 20180516
  Transmission Date: 20180711
  Serious: Yes (Hospitalization)
  Sender: FDA-Public Use
  Company Number: US-ASTRAZENECA-2017SF03685

PATIENT
  Age: 87 Year
  Sex: Female
  Weight: 79.4 kg

DRUGS (16)
  1. FIORCET [Concomitant]
     Indication: HEADACHE
  2. PANTOPRAZOLE [Concomitant]
     Active Substance: PANTOPRAZOLE
     Indication: DYSPEPSIA
  3. BABY ASPIRIN [Concomitant]
     Active Substance: ASPIRIN
  4. TUDORZA PRESSAIR [Suspect]
     Active Substance: ACLIDINIUM BROMIDE
     Indication: CHRONIC OBSTRUCTIVE PULMONARY DISEASE
     Dosage: 400 UG, ONE PUFF TWO TIMES A DAY
     Route: 055
     Dates: start: 2015
  5. VITAMINS NOS [Concomitant]
     Active Substance: VITAMINS
  6. VITAMIN D [Concomitant]
     Active Substance: CHOLECALCIFEROL
  7. LEXAPRO [Concomitant]
     Active Substance: ESCITALOPRAM OXALATE
     Indication: NERVOUS SYSTEM DISORDER
     Dosage: A SMALL DOSE EVERY DAY
  8. POTASSIUM [Concomitant]
     Active Substance: POTASSIUM
  9. CO-Q10 [Concomitant]
  10. BIOTIN [Concomitant]
     Active Substance: BIOTIN
     Indication: ALOPECIA
  11. TRIBENSOR [Concomitant]
     Indication: BLOOD PRESSURE ABNORMAL
  12. TUDORZA PRESSAIR [Suspect]
     Active Substance: ACLIDINIUM BROMIDE
     Indication: CHRONIC OBSTRUCTIVE PULMONARY DISEASE
     Route: 055
     Dates: start: 2015
  13. ACIPHEX [Concomitant]
     Active Substance: RABEPRAZOLE SODIUM
     Dosage: GENERIC
  14. NOVOLOG [Concomitant]
     Active Substance: INSULIN ASPART
     Indication: DIABETES MELLITUS
  15. ROSUVASTATIN. [Suspect]
     Active Substance: ROSUVASTATIN
     Indication: BLOOD CHOLESTEROL ABNORMAL
     Route: 048
     Dates: start: 2013
  16. TEMAZEPAM. [Concomitant]
     Active Substance: TEMAZEPAM
     Indication: SLEEP DISORDER
     Dosage: AS NEEDED ONE TABLET AT NIGHT
     Route: 048
     Dates: start: 200712

REACTIONS (14)
  - Wrong technique in product usage process [Not Recovered/Not Resolved]
  - Device malfunction [Unknown]
  - Fall [Unknown]
  - Dyspepsia [Unknown]
  - Chronic obstructive pulmonary disease [Unknown]
  - Device failure [Unknown]
  - Headache [Unknown]
  - Fatigue [Unknown]
  - Alopecia [Unknown]
  - Body height decreased [Unknown]
  - Depressed mood [Unknown]
  - Product taste abnormal [Unknown]
  - Drug dose omission [Unknown]
  - Off label use [Not Recovered/Not Resolved]

NARRATIVE: CASE EVENT DATE: 2015
